FAERS Safety Report 7203814-8 (Version None)
Quarter: 2010Q4

REPORT INFORMATION
  Report Type: 
  Country: None (occurrence: None)
  Receive Date: 20101230
  Receipt Date: 20101220
  Transmission Date: 20110411
  Serious: Yes (Other)
  Sender: FDA-Public Use
  Company Number: IE-ELI_LILLY_AND_COMPANY-IE201012004933

PATIENT
  Age: 34 Year
  Sex: Male

DRUGS (1)
  1. TADALAFIL [Suspect]
     Dosage: 10 MG, AS NEEDED
     Route: 048

REACTIONS (1)
  - RETINOPATHY [None]
